FAERS Safety Report 10021216 (Version 2)
Quarter: 2014Q1

REPORT INFORMATION
  Report Type: Spontaneous
  Country: US (occurrence: US)
  Receive Date: 20140319
  Receipt Date: 20140319
  Transmission Date: 20141002
  Serious: Yes (Other)
  Sender: FDA-Public Use
  Company Number: CHPA2014US003744

PATIENT
  Age: 67 Year
  Sex: Female

DRUGS (3)
  1. EXCEDRIN ES BACK + BODY [Suspect]
     Indication: BACK PAIN
     Dosage: 1 DF, PRN
     Route: 048
  2. IBUPROFEN [Suspect]
  3. TRAMADOL [Suspect]

REACTIONS (3)
  - Musculoskeletal discomfort [Unknown]
  - Expired drug administered [Unknown]
  - Underdose [Unknown]
